FAERS Safety Report 23534256 (Version 1)
Quarter: 2024Q1

REPORT INFORMATION
  Report Type: Spontaneous
  Country: US (occurrence: US)
  Receive Date: 20240216
  Receipt Date: 20240216
  Transmission Date: 20240409
  Serious: No
  Sender: FDA-Public Use
  Company Number: US-009507513-2401USA014940

PATIENT
  Age: 35 Month
  Sex: Male

DRUGS (4)
  1. TEMODAR [Suspect]
     Active Substance: TEMOZOLOMIDE
     Indication: Medulloblastoma
     Dosage: UNK
     Route: 048
     Dates: start: 2013
  2. IRINOTECAN [Concomitant]
     Active Substance: IRINOTECAN
     Indication: Medulloblastoma
     Dosage: UNK
     Dates: start: 2013
  3. BEVACIZUMAB [Concomitant]
     Active Substance: BEVACIZUMAB
     Indication: Medulloblastoma
     Dosage: UNK
     Dates: start: 2013
  4. TRETINOIN [Concomitant]
     Active Substance: TRETINOIN
     Indication: Medulloblastoma
     Dosage: UNK
     Dates: start: 2013

REACTIONS (2)
  - Product use in unapproved indication [Unknown]
  - Product administered to patient of inappropriate age [Unknown]

NARRATIVE: CASE EVENT DATE: 20130101
